FAERS Safety Report 5179385-7 (Version None)
Quarter: 2006Q4

REPORT INFORMATION
  Report Type: 
  Country: None (occurrence: None)
  Receive Date: 20061219
  Receipt Date: 20061118
  Transmission Date: 20070319
  Serious: Yes (Life-Threatening)
  Sender: FDA-Public Use
  Company Number: SA-ROCHE-471974

PATIENT
  Sex: Male
  Weight: 86 kg

DRUGS (1)
  1. PEGASYS [Suspect]
     Indication: CHRONIC HEPATITIS
     Dosage: STRENGTH AND FORMULATION WAS REPORTED AS: 80 MGM.
     Route: 058
     Dates: start: 20060615, end: 20061101

REACTIONS (1)
  - HEPATIC ENZYME INCREASED [None]
